FAERS Safety Report 24322639 (Version 5)
Quarter: 2025Q1

REPORT INFORMATION
  Report Type: Spontaneous
  Country: US (occurrence: US)
  Receive Date: 20240916
  Receipt Date: 20250311
  Transmission Date: 20250409
  Serious: Yes (Other)
  Sender: CSL BEHRING
  Company Number: US-BEH-2024178643

PATIENT
  Age: 60 Year
  Sex: Female
  Weight: 70.7 kg

DRUGS (5)
  1. HAEGARDA [Suspect]
     Active Substance: HUMAN C1-ESTERASE INHIBITOR
     Indication: Hereditary angioedema
     Route: 058
     Dates: start: 202409
  2. HAEGARDA [Suspect]
     Active Substance: HUMAN C1-ESTERASE INHIBITOR
     Indication: Prophylaxis
     Route: 058
     Dates: start: 202410
  3. ICATIBANT [Concomitant]
     Active Substance: ICATIBANT ACETATE
  4. TAKHZYRO [Concomitant]
     Active Substance: LANADELUMAB-FLYO
  5. FIRAZYR [Concomitant]
     Active Substance: ICATIBANT ACETATE
     Indication: Hereditary angioedema

REACTIONS (14)
  - Hereditary angioedema [Recovered/Resolved]
  - Hereditary angioedema [Recovered/Resolved]
  - Hereditary angioedema [Unknown]
  - Hereditary angioedema [Unknown]
  - Hereditary angioedema [Unknown]
  - Hereditary angioedema [Unknown]
  - Hereditary angioedema [Unknown]
  - Hereditary angioedema [Unknown]
  - Migraine [Unknown]
  - Weight increased [Unknown]
  - Weight increased [Unknown]
  - Weight increased [Unknown]
  - Weight increased [Unknown]
  - Hernia [Unknown]

NARRATIVE: CASE EVENT DATE: 20240905
